FAERS Safety Report 18543599 (Version 1)
Quarter: 2020Q4

REPORT INFORMATION
  Report Type: Spontaneous
  Country: GB (occurrence: GB)
  Receive Date: 20201124
  Receipt Date: 20201124
  Transmission Date: 20210114
  Serious: Yes (Death)
  Sender: FDA-Public Use
  Company Number: GB-JNJFOC-20201136424

PATIENT
  Age: 38 Year
  Sex: Male
  Weight: 64 kg

DRUGS (2)
  1. GAMMA-HYDROXYBUTYRIC ACID [Interacting]
     Active Substance: OXYBATE
     Indication: PRODUCT USED FOR UNKNOWN INDICATION
     Route: 048
  2. SYMTUZA [Suspect]
     Active Substance: COBICISTAT\DARUNAVIR\EMTRICITABINE\TENOFOVIR ALAFENAMIDE
     Indication: HIV INFECTION
     Route: 048
     Dates: start: 20190530

REACTIONS (2)
  - Potentiating drug interaction [Unknown]
  - Accidental overdose [Fatal]

NARRATIVE: CASE EVENT DATE: 20200426
